FAERS Safety Report 8613729-6 (Version None)
Quarter: 2012Q3

REPORT INFORMATION
  Report Type: 
  Country: None (occurrence: None)
  Receive Date: 20120823
  Receipt Date: 20120816
  Transmission Date: 20120928
  Serious: No
  Sender: FDA-Public Use
  Company Number: US-BIOGENIDEC-2012BI021587

PATIENT
  Sex: Male

DRUGS (1)
  1. TYSABRI [Suspect]
     Indication: MULTIPLE SCLEROSIS
     Route: 042
     Dates: start: 20080509

REACTIONS (6)
  - MASS [None]
  - MUSCULAR WEAKNESS [None]
  - BENIGN HEPATIC NEOPLASM [None]
  - MULTIPLE SCLEROSIS [None]
  - BENIGN RENAL NEOPLASM [None]
  - BALANCE DISORDER [None]
